FAERS Safety Report 15576789 (Version 2)
Quarter: 2018Q4

REPORT INFORMATION
  Report Type: Report from Study
  Country: US (occurrence: US)
  Receive Date: 20181101
  Receipt Date: 20181226
  Transmission Date: 20190205
  Serious: Yes (Hospitalization)
  Sender: FDA-Public Use
  Company Number: US-ACTELION-A-NJ2017-158175

PATIENT
  Age: 74 Year
  Sex: Female

DRUGS (1)
  1. OPSUMIT [Suspect]
     Active Substance: MACITENTAN
     Indication: PULMONARY ARTERIAL HYPERTENSION
     Dosage: UNK
     Route: 048
     Dates: start: 20170601

REACTIONS (20)
  - Dyspnoea [Recovered/Resolved]
  - Cardiac failure congestive [Unknown]
  - Small intestinal obstruction [Not Recovered/Not Resolved]
  - Nausea [Not Recovered/Not Resolved]
  - Lung consolidation [Unknown]
  - Atelectasis [Unknown]
  - Pulmonary oedema [Recovered/Resolved]
  - Anaemia [Unknown]
  - Tachycardia [Unknown]
  - Oedema [Recovered/Resolved]
  - Lung infiltration [Unknown]
  - Vomiting [Not Recovered/Not Resolved]
  - Fluid overload [Recovered/Resolved]
  - Concomitant disease aggravated [Recovered/Resolved]
  - Pneumonia [Unknown]
  - Sinus tachycardia [Unknown]
  - Palpitations [Unknown]
  - Abdominal pain [Not Recovered/Not Resolved]
  - Pleural effusion [Unknown]
  - Sinusitis [Unknown]

NARRATIVE: CASE EVENT DATE: 20170719
